FAERS Safety Report 13501135 (Version 5)
Quarter: 2020Q2

REPORT INFORMATION
  Report Type: Spontaneous
  Country: US (occurrence: US)
  Receive Date: 20170501
  Receipt Date: 20200505
  Transmission Date: 20200713
  Serious: No
  Sender: FDA-Public Use
  Company Number: US-ROCHE-1878425

PATIENT
  Sex: Male

DRUGS (18)
  1. OMEGA 3 ACID ETHYL ESTERS [Concomitant]
     Active Substance: OMEGA-3-ACID ETHYL ESTERS
  2. ESBRIET [Suspect]
     Active Substance: PIRFENIDONE
     Indication: IDIOPATHIC PULMONARY FIBROSIS
     Route: 048
     Dates: start: 20161221
  3. CALCIUM CITRATE [Concomitant]
     Active Substance: CALCIUM CITRATE
  4. MOTRIN IB [Concomitant]
     Active Substance: IBUPROFEN
  5. CALCIUM CITRATE [Concomitant]
     Active Substance: CALCIUM CITRATE
  6. ROSUVASTATIN CALCIUM. [Concomitant]
     Active Substance: ROSUVASTATIN CALCIUM
  7. HOMATROPINE [Concomitant]
     Active Substance: HOMATROPINE HYDROBROMIDE
     Indication: PRODUCT USED FOR UNKNOWN INDICATION
  8. ASMANEX [Concomitant]
     Active Substance: MOMETASONE FUROATE
     Dosage: 30 METERED DOSE
     Route: 065
  9. DEXILANT [Concomitant]
     Active Substance: DEXLANSOPRAZOLE
  10. MONTELUKAST SODIUM. [Concomitant]
     Active Substance: MONTELUKAST SODIUM
  11. MUCINEX [Concomitant]
     Active Substance: GUAIFENESIN
  12. ACIDOPHILUS [Concomitant]
     Active Substance: LACTOBACILLUS ACIDOPHILUS
  13. DELSYM [Concomitant]
     Active Substance: DEXTROMETHORPHAN
  14. ZITHROMAX [Concomitant]
     Active Substance: AZITHROMYCIN DIHYDRATE
  15. BENZONATATE. [Concomitant]
     Active Substance: BENZONATATE
  16. CRESTOR [Concomitant]
     Active Substance: ROSUVASTATIN CALCIUM
  17. SYMBICORT [Concomitant]
     Active Substance: BUDESONIDE\FORMOTEROL FUMARATE DIHYDRATE
  18. TYLENOL [Concomitant]
     Active Substance: ACETAMINOPHEN

REACTIONS (9)
  - Productive cough [Unknown]
  - Flatulence [Unknown]
  - Cough [Not Recovered/Not Resolved]
  - Rhinorrhoea [Unknown]
  - Gait disturbance [Not Recovered/Not Resolved]
  - Unevaluable event [Not Recovered/Not Resolved]
  - Hypersensitivity [Unknown]
  - Sunburn [Unknown]
  - Dyspnoea [Not Recovered/Not Resolved]
